FAERS Safety Report 11788237 (Version 6)
Quarter: 2016Q2

REPORT INFORMATION
  Report Type: Spontaneous
  Country: US (occurrence: US)
  Receive Date: 20151201
  Receipt Date: 20160428
  Transmission Date: 20160815
  Serious: No
  Sender: FDA-Public Use
  Company Number: US-ELI_LILLY_AND_COMPANY-US201511006543

PATIENT
  Age: 75 Year
  Sex: Female

DRUGS (7)
  1. FORTEO [Suspect]
     Active Substance: TERIPARATIDE
     Dosage: UNK, UNKNOWN
     Route: 065
  2. FORTEO [Suspect]
     Active Substance: TERIPARATIDE
     Dosage: UNK, UNKNOWN
     Route: 065
  3. VITAMIN D3 [Concomitant]
     Active Substance: CHOLECALCIFEROL
     Indication: SUPPLEMENTATION THERAPY
     Dosage: UNK UNK, QD
     Route: 065
  4. ADVIL [Concomitant]
     Active Substance: IBUPROFEN
     Indication: PAIN
     Dosage: 400 MG, TID
     Route: 065
  5. FORTEO [Suspect]
     Active Substance: TERIPARATIDE
     Indication: OSTEOPOROSIS
     Dosage: 20 UG, QD
     Route: 058
     Dates: start: 20151102
  6. CALCIUM [Suspect]
     Active Substance: CALCIUM
     Indication: SUPPLEMENTATION THERAPY
     Dosage: UNK, QD
     Route: 065
  7. CORTISONE [Concomitant]
     Active Substance: CORTISONE\HYDROCORTISONE
     Indication: ARTHRALGIA
     Dosage: UNK
     Route: 065

REACTIONS (7)
  - Musculoskeletal pain [Recovering/Resolving]
  - Gingivitis [Recovering/Resolving]
  - Headache [Unknown]
  - Blood calcium increased [Unknown]
  - Underdose [Recovered/Resolved]
  - Pain [Not Recovered/Not Resolved]
  - Injection site erythema [Recovering/Resolving]

NARRATIVE: CASE EVENT DATE: 20151102
